FAERS Safety Report 6070789-7 (Version None)
Quarter: 2009Q1

REPORT INFORMATION
  Report Type: 
  Country: None (occurrence: None)
  Receive Date: 20090209
  Receipt Date: 20080617
  Transmission Date: 20090719
  Serious: No
  Sender: FDA-Public Use
  Company Number: A0734235A

PATIENT

DRUGS (1)
  1. PAXIL [Suspect]
     Route: 048
     Dates: start: 20080601

REACTIONS (8)
  - CONSTIPATION [None]
  - DECREASED APPETITE [None]
  - DIZZINESS [None]
  - DRY MOUTH [None]
  - NAUSEA [None]
  - SEXUAL DYSFUNCTION [None]
  - SOMNOLENCE [None]
  - VISUAL IMPAIRMENT [None]
